FAERS Safety Report 6833839-3 (Version None)
Quarter: 2010Q3

REPORT INFORMATION
  Report Type: 
  Country: None (occurrence: None)
  Receive Date: 20100712
  Receipt Date: 20070611
  Transmission Date: 20110219
  Serious: No
  Sender: FDA-Public Use
  Company Number: US-PFIZER INC-2007028157

PATIENT
  Sex: Female
  Weight: 71.21 kg

DRUGS (5)
  1. CHANTIX [Suspect]
     Indication: SMOKING CESSATION THERAPY
     Route: 048
     Dates: start: 20070119, end: 20070201
  2. PERCOCET [Concomitant]
     Indication: PAIN
     Route: 048
  3. OMEPRAZOLE [Concomitant]
     Route: 048
  4. TOPROL-XL [Concomitant]
     Indication: PALPITATIONS
     Route: 048
  5. CRESTOR [Concomitant]
     Indication: BLOOD CHOLESTEROL ABNORMAL
     Route: 048

REACTIONS (5)
  - ABDOMINAL DISTENSION [None]
  - DECREASED APPETITE [None]
  - FEELING ABNORMAL [None]
  - FLATULENCE [None]
  - MEMORY IMPAIRMENT [None]
